FAERS Safety Report 16211577 (Version 2)
Quarter: 2019Q3

REPORT INFORMATION
  Report Type: Spontaneous
  Country: US (occurrence: US)
  Receive Date: 20190418
  Receipt Date: 20190704
  Transmission Date: 20191004
  Serious: No
  Sender: FDA-Public Use
  Company Number: US-BIOGEN-2017BI00346533

PATIENT
  Age: 38 Year
  Sex: Female

DRUGS (2)
  1. AVONEX [Suspect]
     Active Substance: INTERFERON BETA-1A
     Route: 065
     Dates: start: 20170130, end: 20181221
  2. AVONEX [Suspect]
     Active Substance: INTERFERON BETA-1A
     Indication: MULTIPLE SCLEROSIS
     Route: 065
     Dates: start: 20110604

REACTIONS (2)
  - Multiple sclerosis relapse [Unknown]
  - Nuclear magnetic resonance imaging abnormal [Unknown]

NARRATIVE: CASE EVENT DATE: 201611
